FAERS Safety Report 9649424 (Version 1)
Quarter: 2013Q4

REPORT INFORMATION
  Report Type: Spontaneous
  Country: US (occurrence: US)
  Receive Date: 20131028
  Receipt Date: 20131028
  Transmission Date: 20140711
  Serious: Yes (Other)
  Sender: FDA-Public Use
  Company Number: US-PFIZER INC-2013307357

PATIENT
  Age: 52 Year
  Sex: Female
  Weight: 58.05 kg

DRUGS (3)
  1. LYRICA [Suspect]
     Indication: HERPES ZOSTER
     Dosage: 150 MG, 2X/DAY
     Route: 048
     Dates: end: 201310
  2. LYRICA [Suspect]
     Dosage: 150 MG, DAILY
     Dates: start: 201310, end: 201310
  3. LISINOPRIL [Concomitant]
     Indication: HYPERTENSION
     Dosage: 10 MG, DAILY

REACTIONS (4)
  - Intentional drug misuse [Unknown]
  - Insomnia [Unknown]
  - Discomfort [Unknown]
  - Drug ineffective [Unknown]
